FAERS Safety Report 15291383 (Version 2)
Quarter: 2018Q3

REPORT INFORMATION
  Report Type: Spontaneous
  Country: US (occurrence: US)
  Receive Date: 20180817
  Receipt Date: 20180906
  Transmission Date: 20181010
  Serious: No
  Sender: FDA-Public Use
  Company Number: US-009507513-1808USA007598

PATIENT
  Sex: Female

DRUGS (1)
  1. PROVENTIL [Suspect]
     Active Substance: ALBUTEROL
     Dosage: UNK

REACTIONS (5)
  - Wrong technique in product usage process [Unknown]
  - Cardiac disorder [Unknown]
  - Tremor [Unknown]
  - Product quality issue [Unknown]
  - Poor quality device used [Unknown]
